FAERS Safety Report 16433893 (Version 1)
Quarter: 2019Q2

REPORT INFORMATION
  Report Type: Other
  Country: US (occurrence: US)
  Receive Date: 20190614
  Receipt Date: 20190614
  Transmission Date: 20190711
  Serious: Yes (Hospitalization)
  Sender: FDA-Public Use
  Company Number: US-BELCHER PHARMACEUTICALS, LLC-2019VTS00022

PATIENT
  Age: 40 Year
  Sex: Female
  Weight: 97.51 kg

DRUGS (5)
  1. HYOSCYAMINE SULFATE. [Suspect]
     Active Substance: HYOSCYAMINE SULFATE
     Indication: MUSCLE SPASMS
     Dosage: 0.125, AS NEEDED
     Route: 060
  2. HYOSCYAMINE SULFATE. [Suspect]
     Active Substance: HYOSCYAMINE SULFATE
     Dosage: 0.125 MG
     Route: 060
     Dates: start: 20181230, end: 20181230
  3. HYOSCYAMINE SULFATE. [Suspect]
     Active Substance: HYOSCYAMINE SULFATE
     Indication: ABDOMINAL PAIN
     Dosage: 0.375 MG, AS NEEDED
     Route: 060
  4. PRENATAL VITAMINS [Concomitant]
     Active Substance: VITAMINS
  5. IRON [Concomitant]
     Active Substance: IRON
     Dosage: UNK
     Route: 048
     Dates: end: 2018

REACTIONS (18)
  - Dysarthria [Recovered/Resolved]
  - Micturition urgency [Recovered/Resolved]
  - Thinking abnormal [Recovered/Resolved]
  - Drug ineffective [Recovered/Resolved]
  - Hallucination, visual [Recovered/Resolved]
  - Anticholinergic syndrome [Recovered/Resolved]
  - Presyncope [Recovered/Resolved]
  - Disorientation [Recovered/Resolved]
  - Urinary retention [Recovered/Resolved]
  - Therapeutic product effect increased [Recovered/Resolved]
  - Dry mouth [Recovered/Resolved]
  - Mydriasis [Recovered/Resolved]
  - Aphasia [Recovered/Resolved]
  - Asthenopia [Recovered/Resolved]
  - Dizziness [Recovered/Resolved]
  - Muscular weakness [Recovered/Resolved]
  - Gait disturbance [Recovered/Resolved]
  - Vision blurred [Recovered/Resolved]

NARRATIVE: CASE EVENT DATE: 20181230
